FAERS Safety Report 8478218-0 (Version None)
Quarter: 2012Q2

REPORT INFORMATION
  Report Type: 
  Country: None (occurrence: None)
  Receive Date: 20120629
  Receipt Date: 20120627
  Transmission Date: 20120825
  Serious: Yes (Death, Hospitalization)
  Sender: FDA-Public Use
  Company Number: PHHO2010US08864

PATIENT
  Sex: Male
  Weight: 113.2 kg

DRUGS (2)
  1. ILARIS [Suspect]
     Indication: GOUT
     Dosage: 150 MG, UNK
     Route: 048
     Dates: start: 20100412
  2. KEPPRA [Concomitant]
     Indication: EPILEPSY
     Dosage: UNK
     Dates: start: 20080101

REACTIONS (11)
  - CONVULSION [None]
  - BRAIN OEDEMA [None]
  - HAEMORRHAGE INTRACRANIAL [None]
  - CEREBROVASCULAR ACCIDENT [None]
  - UNRESPONSIVE TO STIMULI [None]
  - HYPOAESTHESIA ORAL [None]
  - RESPIRATION ABNORMAL [None]
  - CEREBRAL ARTERY OCCLUSION [None]
  - AMYLOIDOSIS [None]
  - CONCOMITANT DISEASE PROGRESSION [None]
  - SPEECH DISORDER [None]
